FAERS Safety Report 23387577 (Version 7)
Quarter: 2024Q1

REPORT INFORMATION
  Report Type: Spontaneous
  Country: FR (occurrence: FR)
  Receive Date: 20240110
  Receipt Date: 20240307
  Transmission Date: 20240409
  Serious: Yes (Other)
  Sender: FDA-Public Use
  Company Number: FR-PFIZER INC-202400000994

PATIENT
  Age: 8 Year
  Sex: Female

DRUGS (1)
  1. SOMATROPIN [Suspect]
     Active Substance: SOMATROPIN
     Dosage: 1 MG, 6 DAYS A WEEK

REACTIONS (5)
  - Accidental overdose [Unknown]
  - Product storage error [Unknown]
  - Product administration error [Unknown]
  - Device issue [Unknown]
  - Intentional product misuse [Unknown]
